FAERS Safety Report 24049919 (Version 1)
Quarter: 2024Q3

REPORT INFORMATION
  Report Type: Spontaneous
  Country: PL (occurrence: PL)
  Receive Date: 20240704
  Receipt Date: 20240704
  Transmission Date: 20241016
  Serious: Yes (Death, Hospitalization, Other)
  Sender: ASTELLAS
  Company Number: PL-ASTELLAS-2024EU006416

PATIENT
  Age: 33 Year
  Sex: Female

DRUGS (1)
  1. TACROLIMUS [Suspect]
     Active Substance: TACROLIMUS
     Indication: Liver transplant
     Dosage: UNK UNK, UNKNOWN FREQ.
     Route: 065

REACTIONS (6)
  - Disseminated aspergillosis [Fatal]
  - Infective aneurysm [Fatal]
  - Intracranial aneurysm [Fatal]
  - Splenic artery aneurysm [Fatal]
  - Eye inflammation [Fatal]
  - Neurological decompensation [Fatal]
